FAERS Safety Report 12623201 (Version 1)
Quarter: 2016Q3

REPORT INFORMATION
  Report Type: Report from Study
  Country: MX (occurrence: MX)
  Receive Date: 20160804
  Receipt Date: 20160804
  Transmission Date: 20161109
  Serious: Yes (Hospitalization, Other)
  Sender: FDA-Public Use
  Company Number: PHHY2016MX106337

PATIENT
  Sex: Female

DRUGS (1)
  1. EXFORGE [Suspect]
     Active Substance: AMLODIPINE BESYLATE\VALSARTAN
     Indication: HYPERTENSION
     Dosage: 1 DF (AMLODPINE 10 MG AND VALSARTAN 320 MG), QD (SINCE 20 YEARS AGO)
     Route: 065

REACTIONS (2)
  - Peritonitis [Unknown]
  - Thrombosis [Unknown]
